FAERS Safety Report 9172557 (Version 1)
Quarter: 2012Q4

REPORT INFORMATION
  Report Type: Report from Study
  Country: AU (occurrence: AU)
  Receive Date: 20120911
  Receipt Date: 20120911
  Transmission Date: 20130627
  Serious: Yes (Other)
  Sender: FDA-Public Use
  Company Number: AU-ROCHE-1120805

PATIENT
  Sex: Female

DRUGS (2)
  1. AVASTIN [Suspect]
     Indication: LUNG CANCER METASTATIC
     Dosage: dose reduced
     Route: 041
     Dates: start: 20100309, end: 20100621
  2. AVASTIN [Suspect]
     Route: 041
     Dates: start: 20100622

REACTIONS (3)
  - Disease progression [Unknown]
  - Blood creatinine increased [Unknown]
  - Therapeutic response delayed [Unknown]
